FAERS Safety Report 25866214 (Version 1)
Quarter: 2025Q3

REPORT INFORMATION
  Report Type: Spontaneous
  Country: EU (occurrence: EU)
  Receive Date: 20250930
  Receipt Date: 20250930
  Transmission Date: 20251021
  Serious: Yes (Other)
  Sender: NOVARTIS
  Company Number: EU-002147023-NVSC2025ES147392

PATIENT
  Age: 48 Year
  Sex: Male

DRUGS (2)
  1. NILOTINIB [Suspect]
     Active Substance: NILOTINIB
     Indication: Chronic myeloid leukaemia
     Dosage: 300 MG, Q12H
     Route: 065
     Dates: start: 20190101
  2. PONATINIB [Suspect]
     Active Substance: PONATINIB
     Indication: Chronic myeloid leukaemia
     Dosage: 30 MG, Q24H
     Route: 065
     Dates: start: 20200408

REACTIONS (9)
  - Treatment failure [Unknown]
  - Hypertension [Recovered/Resolved]
  - Diverticulitis [Recovering/Resolving]
  - Angina pectoris [Recovering/Resolving]
  - Drug resistance [Unknown]
  - Abdominal distension [Recovering/Resolving]
  - Palpitations [Recovering/Resolving]
  - Echocardiogram abnormal [Recovering/Resolving]
  - Irritable bowel syndrome [Recovered/Resolved]

NARRATIVE: CASE EVENT DATE: 20210921
